FAERS Safety Report 10252491 (Version 1)
Quarter: 2014Q2

REPORT INFORMATION
  Report Type: Spontaneous
  Country: US (occurrence: US)
  Receive Date: 20140623
  Receipt Date: 20140623
  Transmission Date: 20141212
  Serious: No
  Sender: FDA-Public Use
  Company Number: US-009507513-1406USA008819

PATIENT
  Age: 41 Year
  Sex: Female

DRUGS (4)
  1. RALTEGRAVIR POTASSIUM [Suspect]
     Dosage: TOTAL DAILY DOSE 800
     Route: 048
  2. DARUNAVIR [Suspect]
     Dosage: TOTAL DAILY DOSE 1200
  3. RITONAVIR [Suspect]
     Dosage: TOTAL DAILY DOSE 200
  4. ZIDOVUDINE [Suspect]
     Dosage: TOTAL DAILY DOSE 600

REACTIONS (1)
  - Exposure during pregnancy [Recovered/Resolved]
